FAERS Safety Report 6015111-7 (Version None)
Quarter: 2008Q4

REPORT INFORMATION
  Report Type: 
  Country: None (occurrence: None)
  Receive Date: 20081218
  Receipt Date: 20081208
  Transmission Date: 20090506
  Serious: No
  Sender: FDA-Public Use
  Company Number: C-08-0089

PATIENT
  Age: 86 Year
  Sex: Female
  Weight: 72.5755 kg

DRUGS (2)
  1. CLOBETASOL PROPIONATE TOPICAL SOLUTION, [Suspect]
     Indication: ALOPECIA AREATA
     Dosage: TWICE DAILY/TOPICAL
     Route: 061
     Dates: start: 20080901, end: 20081001
  2. FUROSEMIDE [Concomitant]

REACTIONS (2)
  - EYE SWELLING [None]
  - PRURITUS [None]
